FAERS Safety Report 5366691-6 (Version None)
Quarter: 2007Q2

REPORT INFORMATION
  Report Type: 
  Country: None (occurrence: None)
  Receive Date: 20070622
  Receipt Date: 20060606
  Transmission Date: 20071010
  Serious: No
  Sender: FDA-Public Use
  Company Number: US-ASTRAZENECA-2006UW11537

PATIENT
  Age: 82 Year
  Sex: Male
  Weight: 80.7 kg

DRUGS (9)
  1. RHINOCORT [Suspect]
     Indication: NASAL CONGESTION
     Dosage: ONE SPRAY IN EACH NOSTRIL TWO TIMES A DAY
     Route: 045
     Dates: start: 20050501, end: 20060501
  2. DUONEB [Concomitant]
  3. OXYGEN [Concomitant]
  4. PRANDIN [Concomitant]
  5. MONOPRIL [Concomitant]
  6. FUROSEMIDE [Concomitant]
  7. ADVAIR DISKUS 100/50 [Concomitant]
  8. WARFARIN SODIUM [Concomitant]
  9. NASAL SALINE [Concomitant]

REACTIONS (2)
  - EPISTAXIS [None]
  - NASAL DRYNESS [None]
